FAERS Safety Report 4413187-1 (Version None)
Quarter: 2004Q3

REPORT INFORMATION
  Report Type: 
  Country: None (occurrence: None)
  Receive Date: 20040802
  Receipt Date: 20040722
  Transmission Date: 20050211
  Serious: Yes (Hospitalization)
  Sender: FDA-Public Use
  Company Number: CH-GLAXOSMITHKLINE-B0340758A

PATIENT
  Age: 41 Year
  Sex: Male

DRUGS (4)
  1. TRIZIVIR [Suspect]
     Indication: HIV INFECTION
  2. STOCRIN [Suspect]
     Indication: HIV INFECTION
  3. TENORMIN [Suspect]
     Indication: HYPERTENSION
  4. METHADONE HCL [Concomitant]
     Indication: DRUG USE FOR UNKNOWN INDICATION

REACTIONS (6)
  - ASTHENIA [None]
  - COMA [None]
  - DIABETES MELLITUS [None]
  - HYPERGLYCAEMIA [None]
  - POLYDIPSIA [None]
  - POLYURIA [None]
